FAERS Safety Report 5149733-2 (Version None)
Quarter: 2006Q4

REPORT INFORMATION
  Report Type: 
  Country: None (occurrence: None)
  Receive Date: 20061113
  Receipt Date: 20060213
  Transmission Date: 20070319
  Serious: Yes (Life-Threatening, Disabling)
  Sender: FDA-Public Use
  Company Number: 2006AP00717

PATIENT
  Age: 19432 Day
  Sex: Male
  Weight: 110 kg

DRUGS (8)
  1. DIPRIVAN [Suspect]
     Indication: SEDATION
     Dosage: 15-20 ML/HR
     Route: 042
     Dates: start: 20060114, end: 20060119
  2. MIDAZOLAM [Concomitant]
  3. LEPETAN [Concomitant]
  4. NITROGLYCERIN [Concomitant]
  5. HERBESSER [Concomitant]
  6. BUFFERIN [Concomitant]
     Route: 048
     Dates: end: 20060114
  7. NORVASC [Concomitant]
     Route: 048
  8. NITROPEN [Concomitant]
     Route: 048

REACTIONS (14)
  - ANAEMIA [None]
  - CONTINUOUS HAEMODIAFILTRATION [None]
  - CYANOSIS [None]
  - NEISSERIA INFECTION [None]
  - POST PROCEDURAL COMPLICATION [None]
  - PROCEDURAL COMPLICATION [None]
  - PYREXIA [None]
  - RENAL FAILURE [None]
  - RESPIRATORY FAILURE [None]
  - RHABDOMYOLYSIS [None]
  - SHOCK [None]
  - SPUTUM CULTURE POSITIVE [None]
  - STAPHYLOCOCCAL INFECTION [None]
  - STREPTOCOCCAL INFECTION [None]
